FAERS Safety Report 5417733-0 (Version None)
Quarter: 2007Q3

REPORT INFORMATION
  Report Type: 
  Country: None (occurrence: None)
  Receive Date: 20070815
  Receipt Date: 20070815
  Transmission Date: 20080115
  Serious: Yes (Hospitalization)
  Sender: FDA-Public Use
  Company Number: None

PATIENT
  Sex: Male
  Weight: 83.9154 kg

DRUGS (4)
  1. COUMADIN [Suspect]
     Indication: ATRIAL FIBRILLATION
     Dosage: 5MG PO QD  (THERAPY DATES: STARTED 1 WEEK PRIOR TO ADMISSION)
     Route: 048
  2. ZOCOR [Concomitant]
  3. AVALIDE [Concomitant]
  4. ETODOLAC [Concomitant]

REACTIONS (3)
  - BLOOD PRESSURE DECREASED [None]
  - DIZZINESS [None]
  - RECTAL HAEMORRHAGE [None]
